FAERS Safety Report 19623327 (Version 1)
Quarter: 2021Q3

REPORT INFORMATION
  Report Type: Spontaneous
  Country: DE (occurrence: DE)
  Receive Date: 20210728
  Receipt Date: 20210728
  Transmission Date: 20211014
  Serious: Yes (Other)
  Sender: FDA-Public Use
  Company Number: DE-SA-2021SA245426

PATIENT
  Age: 30 Year
  Sex: Female

DRUGS (4)
  1. FEXOFENADINE HYDROCHLORIDE. [Suspect]
     Active Substance: FEXOFENADINE HYDROCHLORIDE
     Indication: URTICARIA
     Dosage: 4 X 180MG / DAY; OVERDOSE, CONTRARY TO THE APPROVAL
     Route: 048
     Dates: start: 20210625, end: 20210625
  2. L?THYROXIN [LEVOTHYROXINE] [Concomitant]
     Active Substance: LEVOTHYROXINE SODIUM
  3. HYDROXYZINE [Concomitant]
     Active Substance: HYDROXYZINE HYDROCHLORIDE
     Dosage: UNK
  4. HYDROCORTISONE. [Concomitant]
     Active Substance: HYDROCORTISONE

REACTIONS (3)
  - Myopathy [Unknown]
  - Rhabdomyolysis [Unknown]
  - Overdose [Unknown]

NARRATIVE: CASE EVENT DATE: 20210625
